FAERS Safety Report 18183620 (Version 1)
Quarter: 2020Q3

REPORT INFORMATION
  Report Type: Spontaneous
  Country: ES (occurrence: ES)
  Receive Date: 20200822
  Receipt Date: 20200822
  Transmission Date: 20201103
  Serious: Yes (Other)
  Sender: FDA-Public Use
  Company Number: ES-SAMSUNG BIOEPIS-SB-2020-26096

PATIENT
  Age: 30 Year
  Sex: Female
  Weight: 50 kg

DRUGS (6)
  1. FLIXABI [Suspect]
     Active Substance: INFLIXIMAB
     Dosage: WEEKS 2 (5 MG / KG)
     Route: 042
  2. FLIXABI [Suspect]
     Active Substance: INFLIXIMAB
     Dosage: WEEKS 6 (5 MG / KG)
     Route: 042
  3. FLIXABI [Suspect]
     Active Substance: INFLIXIMAB
     Indication: AXIAL SPONDYLOARTHRITIS
     Dosage: (250 MG (5 MG / KG) WEEKS 0, 2, 6 AND THEN EVERY 8 WEEKS)
     Route: 042
     Dates: start: 20190524, end: 20200529
  4. FLIXABI [Suspect]
     Active Substance: INFLIXIMAB
     Dosage: WEEKS 0 (5 MG / KG)
     Route: 042
  5. LOETTE [Concomitant]
     Active Substance: ETHINYL ESTRADIOL\LEVONORGESTREL
     Indication: PRODUCT USED FOR UNKNOWN INDICATION
     Dosage: 100/20 MICROGRAMS FILM?COATED TABLETS, 63 (3 X 21) TABLETS
     Route: 065
  6. FLIXABI [Suspect]
     Active Substance: INFLIXIMAB
     Route: 042

REACTIONS (4)
  - Infusion related reaction [Recovered/Resolved]
  - Erythema [Recovered/Resolved]
  - Pruritus [Recovering/Resolving]
  - Product use in unapproved indication [Unknown]

NARRATIVE: CASE EVENT DATE: 20200529
